FAERS Safety Report 5860522-3 (Version None)
Quarter: 2008Q3

REPORT INFORMATION
  Report Type: 
  Country: None (occurrence: None)
  Receive Date: 20080827
  Receipt Date: 20071001
  Transmission Date: 20090109
  Serious: No
  Sender: FDA-Public Use
  Company Number: US-ABBOTT-07P-163-0419192-00

PATIENT
  Age: 40 Year
  Sex: Male

DRUGS (4)
  1. COATED PDS [Suspect]
     Indication: BLOOD TRIGLYCERIDES INCREASED
     Route: 048
     Dates: start: 20070801, end: 20070928
  2. METFORMIN HCL [Concomitant]
     Indication: DIABETES MELLITUS
  3. VALSARTAN [Concomitant]
     Indication: HYPERTENSION
  4. FENOFIBRATE [Concomitant]
     Indication: BLOOD TRIGLYCERIDES INCREASED
     Dates: start: 20070928

REACTIONS (1)
  - BLOOD TRIGLYCERIDES INCREASED [None]
